FAERS Safety Report 8851339 (Version 1)
Quarter: 2012Q4

REPORT INFORMATION
  Report Type: 
  Country: GB (occurrence: GB)
  Receive Date: 20121022
  Receipt Date: 20121022
  Transmission Date: 20130627
  Serious: Yes (Hospitalization)
  Sender: FDA-Public Use
  Company Number: GB-AMGEN-GBRSP2012066396

PATIENT
  Sex: Male

DRUGS (6)
  1. NEULASTA [Suspect]
     Indication: CHEMOTHERAPY
     Dosage: 6 mg, per chemo regim
  2. RITUXIMAB [Concomitant]
     Indication: NON-HODGKIN^S LYMPHOMA
  3. CYCLOPHOSPHAMIDE [Concomitant]
     Indication: NON-HODGKIN^S LYMPHOMA
  4. DOXORUBICIN [Concomitant]
     Indication: NON-HODGKIN^S LYMPHOMA
  5. VINCRISTINE [Concomitant]
     Indication: NON-HODGKIN^S LYMPHOMA
  6. PREDNISOLONE [Concomitant]
     Indication: NON-HODGKIN^S LYMPHOMA

REACTIONS (1)
  - Neutropenia [Unknown]
